FAERS Safety Report 8044048-7 (Version None)
Quarter: 2012Q1

REPORT INFORMATION
  Report Type: 
  Country: None (occurrence: None)
  Receive Date: 20120113
  Receipt Date: 20120109
  Transmission Date: 20120608
  Serious: Yes (Other)
  Sender: FDA-Public Use
  Company Number: US-JNJFOC-20120103990

PATIENT
  Sex: Male

DRUGS (2)
  1. FENTANYL-100 [Suspect]
     Indication: PAIN
     Route: 062
     Dates: start: 20110101
  2. INSULIN [Concomitant]
     Dosage: HALF DOSE OF INSULIN
     Route: 065

REACTIONS (1)
  - COLONOSCOPY [None]
